FAERS Safety Report 7003237-0 (Version None)
Quarter: 2010Q3

REPORT INFORMATION
  Report Type: 
  Country: None (occurrence: None)
  Receive Date: 20100920
  Receipt Date: 20100916
  Transmission Date: 20110219
  Serious: Yes (Death)
  Sender: FDA-Public Use
  Company Number: PHHY2010TH61456

PATIENT
  Age: 77 Year
  Sex: Female

DRUGS (1)
  1. ACLASTA [Suspect]
     Dosage: UNK

REACTIONS (3)
  - CARDIAC DISORDER [None]
  - DIABETES MELLITUS [None]
  - HYPERTENSION [None]
